FAERS Safety Report 7141100-5 (Version None)
Quarter: 2010Q4

REPORT INFORMATION
  Report Type: 
  Country: None (occurrence: None)
  Receive Date: 20101207
  Receipt Date: 20101128
  Transmission Date: 20110411
  Serious: Yes (Other)
  Sender: FDA-Public Use
  Company Number: DE-JNJFOC-20101108349

PATIENT
  Age: 17 Year
  Sex: Female
  Weight: 86 kg

DRUGS (1)
  1. RISPERDAL [Suspect]
     Indication: ILL-DEFINED DISORDER
     Route: 048
     Dates: start: 20101128, end: 20101128

REACTIONS (2)
  - DRUG ABUSE [None]
  - OVERDOSE [None]
